FAERS Safety Report 8612290-X (Version None)
Quarter: 2012Q3

REPORT INFORMATION
  Report Type: 
  Country: None (occurrence: None)
  Receive Date: 20120810
  Receipt Date: 20120810
  Transmission Date: 20120928
  Serious: Yes (Life-Threatening, Hospitalization)
  Sender: FDA-Public Use
  Company Number: None

PATIENT
  Age: 50 Year
  Sex: Male
  Weight: 99.3377 kg

DRUGS (2)
  1. INCIVEK [Suspect]
     Indication: HEPATITIS C
     Dosage: 2 TAB TID PO
     Route: 048
     Dates: start: 20120202, end: 20120412
  2. PEGASYS [Suspect]
     Indication: HEPATITIS C
     Dosage: 180MCG/1200MG SQ WEEKLY/PO DAILY OTHER
     Route: 048
     Dates: start: 20120202, end: 20120412

REACTIONS (3)
  - FEBRILE NEUTROPENIA [None]
  - PANCYTOPENIA [None]
  - APLASTIC ANAEMIA [None]
